FAERS Safety Report 11264438 (Version 2)
Quarter: 2016Q3

REPORT INFORMATION
  Report Type: Spontaneous
  Country: US (occurrence: US)
  Receive Date: 20150713
  Receipt Date: 20160907
  Transmission Date: 20161109
  Serious: Yes (Hospitalization)
  Sender: FDA-Public Use
  Company Number: US-JNJFOC-20150609739

PATIENT
  Sex: Male
  Weight: 56.02 kg

DRUGS (1)
  1. LEVAQUIN [Suspect]
     Active Substance: LEVOFLOXACIN
     Indication: SINUSITIS
     Route: 048
     Dates: start: 20090727, end: 20090806

REACTIONS (3)
  - Neuropathy peripheral [Not Recovered/Not Resolved]
  - Tendon disorder [Unknown]
  - Depression [Unknown]

NARRATIVE: CASE EVENT DATE: 2009
